FAERS Safety Report 11492985 (Version 2)
Quarter: 2016Q2

REPORT INFORMATION
  Report Type: Spontaneous
  Country: FR (occurrence: FR)
  Receive Date: 20150911
  Receipt Date: 20160407
  Transmission Date: 20160815
  Serious: Yes (Other)
  Sender: FDA-Public Use
  Company Number: FR-PFIZER INC-2015296028

PATIENT
  Age: 76 Year
  Sex: Female

DRUGS (10)
  1. KARDEGIC [Concomitant]
     Active Substance: ASPIRIN LYSINE
  2. RILMENIDINE [Concomitant]
     Active Substance: RILMENIDINE
  3. COTAREG [Concomitant]
     Active Substance: HYDROCHLOROTHIAZIDE\VALSARTAN
  4. ESOMEPRAZOLE [Concomitant]
     Active Substance: ESOMEPRAZOLE
  5. WYSTAMM [Suspect]
     Active Substance: RUPATADINE FUMARATE
     Dosage: 10 MG, UNK
     Route: 048
     Dates: start: 20150601, end: 2015
  6. ATORVASTATIN [Concomitant]
     Active Substance: ATORVASTATIN
  7. ALDACTONE [Concomitant]
     Active Substance: SPIRONOLACTONE
  8. AROMASINE [Suspect]
     Active Substance: EXEMESTANE
     Indication: BREAST CANCER
     Dosage: 25 MG, 1X/DAY
     Route: 048
     Dates: start: 20150403, end: 20150629
  9. NEBIVOLOL. [Concomitant]
     Active Substance: NEBIVOLOL
  10. RISEDRONATE MYLAN [Suspect]
     Active Substance: RISEDRONATE SODIUM
     Indication: BREAST CANCER
     Dosage: 35 MG, WEEKLY
     Route: 048
     Dates: start: 20150403, end: 20150629

REACTIONS (3)
  - Hepatitis [Recovering/Resolving]
  - Pruritus [Recovered/Resolved]
  - Jaundice [Recovered/Resolved]

NARRATIVE: CASE EVENT DATE: 20150622
